FAERS Safety Report 5514950-6 (Version None)
Quarter: 2007Q4

REPORT INFORMATION
  Report Type: 
  Country: None (occurrence: None)
  Receive Date: 20071113
  Receipt Date: 20061016
  Transmission Date: 20080405
  Serious: No
  Sender: FDA-Public Use
  Company Number: A0623930A

PATIENT
  Sex: Male

DRUGS (13)
  1. COREG [Suspect]
     Indication: DRUG USE FOR UNKNOWN INDICATION
     Route: 048
  2. LAMICTAL [Suspect]
     Indication: DRUG USE FOR UNKNOWN INDICATION
     Route: 048
  3. ALTACE [Suspect]
     Indication: DRUG USE FOR UNKNOWN INDICATION
  4. FUROSEMIDE [Suspect]
     Indication: DRUG USE FOR UNKNOWN INDICATION
  5. KLOR-CON [Suspect]
     Indication: DRUG USE FOR UNKNOWN INDICATION
  6. RANITIDINE [Suspect]
     Indication: DRUG USE FOR UNKNOWN INDICATION
  7. CRESTOR [Suspect]
     Indication: DRUG USE FOR UNKNOWN INDICATION
  8. ASPIRIN [Suspect]
     Indication: DRUG USE FOR UNKNOWN INDICATION
  9. DAILY VITAMIN [Suspect]
     Indication: DRUG USE FOR UNKNOWN INDICATION
  10. FISH OIL [Suspect]
     Indication: DRUG USE FOR UNKNOWN INDICATION
  11. CLOPIDOGREL [Suspect]
     Indication: DRUG USE FOR UNKNOWN INDICATION
  12. DOXYCYCLINE [Suspect]
     Indication: DRUG USE FOR UNKNOWN INDICATION
     Dosage: 100MG TWICE PER DAY
  13. ATACAND [Concomitant]

REACTIONS (7)
  - ADVERSE REACTION [None]
  - AGITATION [None]
  - CONDITION AGGRAVATED [None]
  - SPEECH DISORDER [None]
  - STOMATITIS [None]
  - TONGUE DISCOLOURATION [None]
  - VISUAL ACUITY REDUCED [None]
